FAERS Safety Report 24702483 (Version 1)
Quarter: 2024Q4

REPORT INFORMATION
  Report Type: Report from Study
  Country: CO (occurrence: CO)
  Receive Date: 20241205
  Receipt Date: 20241205
  Transmission Date: 20250115
  Serious: Yes (Hospitalization)
  Sender: BIOVITRUM
  Company Number: CO-AstraZeneca-CH-00749513A

PATIENT
  Age: 8 Month
  Sex: Male
  Weight: 5.39 kg

DRUGS (1)
  1. PALIVIZUMAB [Suspect]
     Active Substance: PALIVIZUMAB
     Indication: Antiviral prophylaxis
     Dosage: 15 MILLIGRAM/KILOGRAM, QMONTH
     Route: 030
     Dates: start: 20240601

REACTIONS (5)
  - Influenza [Recovering/Resolving]
  - Rhinorrhoea [Recovering/Resolving]
  - Decreased appetite [Recovering/Resolving]
  - Malnutrition [Recovering/Resolving]
  - Reflux gastritis [Recovering/Resolving]

NARRATIVE: CASE EVENT DATE: 20241022
